FAERS Safety Report 7252938-8 (Version None)
Quarter: 2011Q1

REPORT INFORMATION
  Report Type: 
  Country: None (occurrence: None)
  Receive Date: 20110129
  Receipt Date: 20100302
  Transmission Date: 20110831
  Serious: No
  Sender: FDA-Public Use
  Company Number: US-ABBOTT-10P-163-0629752-00

PATIENT
  Sex: Male
  Weight: 67.192 kg

DRUGS (3)
  1. HUMIRA [Suspect]
     Indication: PSORIASIS
     Route: 058
  2. HUMIRA [Suspect]
     Indication: PSORIASIS
     Route: 058
  3. VANOS [Concomitant]
     Indication: PSORIASIS
     Route: 061

REACTIONS (4)
  - HERPES VIRUS INFECTION [None]
  - PSORIASIS [None]
  - HERPES ZOSTER [None]
  - RASH [None]
